FAERS Safety Report 6633956-7 (Version None)
Quarter: 2010Q1

REPORT INFORMATION
  Report Type: 
  Country: None (occurrence: None)
  Receive Date: 20100315
  Receipt Date: 20100310
  Transmission Date: 20100710
  Serious: Yes (Other)
  Sender: FDA-Public Use
  Company Number: DE-ROXANE LABORATORIES, INC.-2010-RO-00249RO

PATIENT
  Age: 23 Year
  Sex: Female

DRUGS (6)
  1. COCAINE [Suspect]
  2. BUPROPION HCL [Suspect]
     Indication: ASTHENIA
     Dosage: 150 MG
     Dates: start: 20070101
  3. BUPROPION HCL [Suspect]
     Indication: APATHY
     Dosage: 300 MG
  4. BUPROPION HCL [Suspect]
  5. S-CITALOPRAM [Suspect]
     Indication: PANIC ATTACK
     Dates: end: 20070101
  6. S-CITALOPRAM [Suspect]
     Indication: DEPRESSIVE SYMPTOM

REACTIONS (9)
  - AFFECT LABILITY [None]
  - APATHY [None]
  - ASTHENIA [None]
  - AUTONOMIC NERVOUS SYSTEM IMBALANCE [None]
  - DRUG ABUSE [None]
  - DRUG DEPENDENCE [None]
  - PANIC ATTACK [None]
  - RHINALGIA [None]
  - TACHYCARDIA [None]
